FAERS Safety Report 17589824 (Version 2)
Quarter: 2021Q2

REPORT INFORMATION
  Report Type: Spontaneous
  Country: US (occurrence: US)
  Receive Date: 20200327
  Receipt Date: 20210413
  Transmission Date: 20210716
  Serious: No
  Sender: FDA-Public Use
  Company Number: US-ALLERGAN-2002393US

PATIENT
  Sex: Female

DRUGS (2)
  1. LATISSE [Suspect]
     Active Substance: BIMATOPROST
     Indication: GROWTH OF EYELASHES
     Dosage: 2 GTT, QHS
     Dates: start: 201911, end: 20200114
  2. LATISSE [Suspect]
     Active Substance: BIMATOPROST
     Dosage: UNK, QOD

REACTIONS (9)
  - Eye pain [Unknown]
  - Asthenopia [Recovered/Resolved]
  - Eye irritation [Recovered/Resolved]
  - Lacrimation increased [Unknown]
  - Inappropriate schedule of product administration [Unknown]
  - Drug ineffective [Unknown]
  - Eye discharge [Recovered/Resolved]
  - Wrong technique in product usage process [Unknown]
  - Hypersensitivity [Recovered/Resolved]
